FAERS Safety Report 8066683-2 (Version None)
Quarter: 2012Q1

REPORT INFORMATION
  Report Type: 
  Country: None (occurrence: None)
  Receive Date: 20120124
  Receipt Date: 20120116
  Transmission Date: 20120608
  Serious: Yes (Hospitalization)
  Sender: FDA-Public Use
  Company Number: US-BAYER-2011-124538

PATIENT
  Sex: Female
  Weight: 136.5 kg

DRUGS (4)
  1. LISINOPRIL [Concomitant]
     Dosage: 20 MG, UNK
     Dates: start: 20090105, end: 20090125
  2. YAZ [Suspect]
     Dosage: UNK
     Dates: start: 20081101, end: 20090101
  3. MOTRIN [Concomitant]
     Dosage: UNK
     Dates: start: 20010101
  4. PRILOSEC [Concomitant]
     Dosage: 20 MG, UNK
     Dates: start: 20090105, end: 20090125

REACTIONS (4)
  - INJURY [None]
  - SWELLING [None]
  - PAIN IN EXTREMITY [None]
  - DEEP VEIN THROMBOSIS [None]
